FAERS Safety Report 18695093 (Version 2)
Quarter: 2021Q1

REPORT INFORMATION
  Report Type: Spontaneous
  Country: US (occurrence: US)
  Receive Date: 20210104
  Receipt Date: 20210104
  Transmission Date: 20210419
  Serious: Yes (Hospitalization)
  Sender: FDA-Public Use
  Company Number: US-CELGENEUS-USA-20201207643

PATIENT
  Sex: Female
  Weight: 73 kg

DRUGS (1)
  1. REVLIMID [Suspect]
     Active Substance: LENALIDOMIDE
     Indication: PLASMA CELL MYELOMA
     Dosage: 25 MILLIGRAM
     Route: 048
     Dates: start: 20200708

REACTIONS (4)
  - Influenza [Unknown]
  - Blood calcium increased [Unknown]
  - Product dose omission issue [Unknown]
  - Hip fracture [Unknown]

NARRATIVE: CASE EVENT DATE: 2020
